FAERS Safety Report 25165511 (Version 1)
Quarter: 2025Q2

REPORT INFORMATION
  Report Type: Spontaneous
  Country: US (occurrence: US)
  Receive Date: 20250407
  Receipt Date: 20250407
  Transmission Date: 20250717
  Serious: No
  Sender: BRISTOL MYERS SQUIBB
  Company Number: US-BRISTOL-MYERS SQUIBB COMPANY-2025-050482

PATIENT
  Age: 76 Year
  Sex: Male
  Weight: 63.5 kg

DRUGS (2)
  1. INREBIC [Suspect]
     Active Substance: FEDRATINIB HYDROCHLORIDE
     Indication: Product used for unknown indication
     Route: 048
  2. ROPEGINTERFERON ALFA-2B [Concomitant]
     Active Substance: ROPEGINTERFERON ALFA-2B
     Indication: Myeloproliferative neoplasm
     Route: 058
     Dates: start: 20250212

REACTIONS (1)
  - Constipation [Not Recovered/Not Resolved]
